FAERS Safety Report 4431305-6 (Version None)
Quarter: 2004Q3

REPORT INFORMATION
  Report Type: 
  Country: None (occurrence: None)
  Receive Date: 20040817
  Receipt Date: 20040805
  Transmission Date: 20050211
  Serious: Yes (Other)
  Sender: FDA-Public Use
  Company Number: 2004194585JP

PATIENT
  Age: 6 Year
  Sex: Male
  Weight: 17.7 kg

DRUGS (3)
  1. GENOTROPIN [Suspect]
     Indication: HYPOPITUITARISM
     Dosage: 0.3 MG; SEE IMAGE
     Route: 058
     Dates: start: 20011013
  2. GENOTROPIN [Suspect]
     Indication: HYPOPITUITARISM
     Dosage: 0.3 MG; SEE IMAGE
     Route: 058
     Dates: start: 20030412
  3. GENOTROPIN [Suspect]
     Indication: HYPOPITUITARISM
     Dosage: 0.3 MG; SEE IMAGE
     Route: 058
     Dates: start: 20031025

REACTIONS (2)
  - EPILEPSY [None]
  - TREATMENT NONCOMPLIANCE [None]
